FAERS Safety Report 5208070-8 (Version None)
Quarter: 2006Q4

REPORT INFORMATION
  Report Type: 
  Country: None (occurrence: None)
  Receive Date: 20061027
  Receipt Date: 20060504
  Transmission Date: 20070319
  Serious: Yes (Disabling, Other)
  Sender: FDA-Public Use
  Company Number: 200611657US

PATIENT
  Age: 21 Year
  Sex: Male
  Weight: 98.63 kg

DRUGS (5)
  1. KETEK [Suspect]
     Indication: SINUSITIS
     Dosage: 800 MG QD PO
     Route: 048
     Dates: start: 20060208, end: 20060214
  2. DEXAMETHASONE [Concomitant]
  3. ZYRTEC [Concomitant]
  4. FLUTICASONE PROPIONATE (FLONASE) [Concomitant]
  5. AZELASTINE HYDROCHLORIDE (ASTELIN) [Concomitant]

REACTIONS (7)
  - ACNE [None]
  - BACK PAIN [None]
  - DIZZINESS [None]
  - MIGRAINE [None]
  - MYALGIA [None]
  - VISION BLURRED [None]
  - VISUAL DISTURBANCE [None]
